FAERS Safety Report 4484848-3 (Version None)
Quarter: 2004Q4

REPORT INFORMATION
  Report Type: 
  Country: None (occurrence: None)
  Receive Date: 20041025
  Receipt Date: 20041020
  Transmission Date: 20050328
  Serious: Yes (Disabling)
  Sender: FDA-Public Use
  Company Number: US-MERCK-0410USA03134

PATIENT
  Age: 45 Year
  Sex: Female

DRUGS (4)
  1. VIOXX [Suspect]
     Indication: ARTHRITIS
     Route: 048
     Dates: start: 20040101, end: 20040930
  2. POTASSIUM (UNSPECIFIED) [Concomitant]
     Route: 065
  3. HYDRODIURIL [Concomitant]
     Route: 065
  4. RANITIDINE-BC [Concomitant]
     Route: 065

REACTIONS (4)
  - CHEST PAIN [None]
  - DIZZINESS [None]
  - HEAD DISCOMFORT [None]
  - HYPOAESTHESIA [None]
